FAERS Safety Report 23641526 (Version 1)
Quarter: 2024Q1

REPORT INFORMATION
  Report Type: Spontaneous
  Country: US (occurrence: US)
  Receive Date: 20240318
  Receipt Date: 20240318
  Transmission Date: 20240409
  Serious: No
  Sender: FDA-Public Use
  Company Number: US-CIPLA LTD.-2024US01091

PATIENT

DRUGS (1)
  1. LENALIDOMIDE [Suspect]
     Active Substance: LENALIDOMIDE
     Indication: Chemotherapy
     Dosage: 10 MILLIGRAM, QD (1 DAILY FOR 21 DAYS THEN 7 DAYS OFF)
     Route: 065

REACTIONS (1)
  - Inappropriate schedule of product administration [Unknown]
